FAERS Safety Report 21524551 (Version 2)
Quarter: 2023Q1

REPORT INFORMATION
  Report Type: Spontaneous
  Country: US (occurrence: US)
  Receive Date: 20221030
  Receipt Date: 20230303
  Transmission Date: 20230418
  Serious: No
  Sender: FDA-Public Use
  Company Number: US-SA-SAC20221021001366

PATIENT
  Age: 15 Year
  Sex: Female

DRUGS (1)
  1. DUPIXENT [Suspect]
     Active Substance: DUPILUMAB
     Dosage: 200 MG, FREQUENCY- OTHER
     Route: 058

REACTIONS (3)
  - Dry skin [Unknown]
  - Pruritus [Unknown]
  - Rash macular [Unknown]

NARRATIVE: CASE EVENT DATE: 20221227
